FAERS Safety Report 5956104-5 (Version None)
Quarter: 2008Q4

REPORT INFORMATION
  Report Type: 
  Country: None (occurrence: None)
  Receive Date: 20081113
  Receipt Date: 20081104
  Transmission Date: 20090506
  Serious: Yes (Hospitalization)
  Sender: FDA-Public Use
  Company Number: IPS_01191_2008

PATIENT
  Sex: Male

DRUGS (12)
  1. APOKYN [Suspect]
     Indication: PARKINSON'S DISEASE
     Dosage: 0.01 ML - 0.03 ML THREE TIMES DAILY SUBCUTANEOUS
     Route: 058
     Dates: start: 20080701, end: 20080930
  2. CALCITRIOL [Concomitant]
  3. MIRAPEX [Concomitant]
  4. POTASSIUM CHLORIDE [Concomitant]
  5. SPIRONOLACTONE [Concomitant]
  6. HYDROCODONE BITARTRATE [Concomitant]
  7. CEFADROXIL [Concomitant]
  8. CARBIDOPA/ LEVODOPA IMMEDIATE RELEASE [Concomitant]
  9. CARBIDOPA/ LEVODOPA EXTENDED RELEASE [Concomitant]
  10. NAPROXEN [Concomitant]
  11. FUROSEMIDE [Concomitant]
  12. AMANTADINE HCL [Concomitant]

REACTIONS (7)
  - CRYING [None]
  - DYSPNOEA [None]
  - HYPERHIDROSIS [None]
  - INJECTION SITE HAEMATOMA [None]
  - PULMONARY THROMBOSIS [None]
  - THROMBOSIS [None]
  - UNRESPONSIVE TO STIMULI [None]
